FAERS Safety Report 11137953 (Version 1)
Quarter: 2015Q2

REPORT INFORMATION
  Report Type: Spontaneous
  Country: SE (occurrence: SE)
  Receive Date: 20150526
  Receipt Date: 20150526
  Transmission Date: 20150821
  Serious: Yes (Other)
  Sender: FDA-Public Use
  Company Number: PHHY2014SE107207

PATIENT
  Age: 72 Year
  Sex: Female

DRUGS (11)
  1. SALURES [Concomitant]
     Active Substance: BENDROFLUMETHIAZIDE
  2. CITALOPRAM [Concomitant]
     Active Substance: CITALOPRAM HYDROBROMIDE
  3. BISOCARD [Concomitant]
     Active Substance: BISOPROLOL
  4. LEVAXIN [Concomitant]
     Active Substance: LEVOTHYROXINE SODIUM
  5. BETOLVEX                                /DEN/ [Concomitant]
  6. XERODENT [Concomitant]
  7. ULTIBRO BREEZHALER [Suspect]
     Active Substance: GLYCOPYRRONIUM\INDACATEROL
     Indication: CHRONIC OBSTRUCTIVE PULMONARY DISEASE
     Dosage: 1 DF, DAILY
     Route: 055
     Dates: start: 20140605, end: 20140627
  8. VAGIFEM [Concomitant]
     Active Substance: ESTRADIOL
  9. OMEPRAZOL SANDOZ ECO [Concomitant]
  10. ALVEDON [Concomitant]
     Active Substance: ACETAMINOPHEN
  11. VENTILASTIN NOVOLIZER [Concomitant]

REACTIONS (6)
  - Dizziness [Recovered/Resolved]
  - Heart rate decreased [Recovered/Resolved]
  - Fatigue [Recovered/Resolved]
  - Myalgia [Recovered/Resolved]
  - Swelling [Recovered/Resolved]
  - Headache [Recovered/Resolved]

NARRATIVE: CASE EVENT DATE: 20140606
